FAERS Safety Report 8859682 (Version 1)
Quarter: 2012Q4

REPORT INFORMATION
  Report Type: 
  Country: US (occurrence: US)
  Receive Date: 20121025
  Receipt Date: 20121025
  Transmission Date: 20130627
  Serious: No
  Sender: FDA-Public Use
  Company Number: US-ABBOTT-12P-163-0895443-00

PATIENT
  Sex: Female
  Weight: 45.4 kg

DRUGS (7)
  1. LUPRON DEPOT 3.75 MG [Suspect]
     Indication: ENDOMETRIOSIS
     Route: 030
  2. LUPRON DEPOT 3.75 MG [Suspect]
     Route: 030
  3. LUPRON DEPOT [Suspect]
     Indication: ENDOMETRIOSIS
     Route: 030
  4. CORTISONE [Concomitant]
     Indication: PRODUCT USED FOR UNKNOWN INDICATION
  5. ADVAIR [Concomitant]
     Indication: PRODUCT USED FOR UNKNOWN INDICATION
  6. ZYRTEC [Concomitant]
     Indication: PRODUCT USED FOR UNKNOWN INDICATION
  7. RESTASIS [Concomitant]
     Indication: PRODUCT USED FOR UNKNOWN INDICATION

REACTIONS (1)
  - Injection site pain [Recovered/Resolved]
